FAERS Safety Report 8902229 (Version 2)
Quarter: 2013Q1

REPORT INFORMATION
  Report Type: Spontaneous
  Country: CA (occurrence: CA)
  Receive Date: 20121112
  Receipt Date: 20130129
  Transmission Date: 20140127
  Serious: Yes (Other)
  Sender: FDA-Public Use
  Company Number: CA-SANOFI-AVENTIS-2012SA079300

PATIENT
  Age: 12 Year
  Sex: Female
  Weight: 102 kg

DRUGS (3)
  1. DESMOPRESSIN ACETATE [Suspect]
     Indication: HYPOPITUITARISM
     Route: 065
  2. HYDROCORTISONE [Concomitant]
     Route: 030
  3. THYROXIN [Concomitant]
     Route: 065

REACTIONS (3)
  - Dyspnoea [Recovered/Resolved]
  - Rash [Recovered/Resolved]
  - Abdominal pain [Recovered/Resolved]
